FAERS Safety Report 5526205-4 (Version None)
Quarter: 2007Q4

REPORT INFORMATION
  Report Type: 
  Country: None (occurrence: None)
  Receive Date: 20071127
  Receipt Date: 20071120
  Transmission Date: 20080405
  Serious: Yes (Other)
  Sender: FDA-Public Use
  Company Number: PHMT2007CA01316

PATIENT
  Age: 56 Year
  Sex: Male

DRUGS (3)
  1. GLEEVEC [Suspect]
     Indication: CHRONIC MYELOID LEUKAEMIA
     Dosage: TAB, UNK
     Route: 048
     Dates: start: 20040101
  2. PANTOPRAZOLE SODIUM [Concomitant]
  3. NAPROXEN [Concomitant]

REACTIONS (8)
  - ABDOMINAL PAIN [None]
  - ARRHYTHMIA [None]
  - COLD SWEAT [None]
  - DIARRHOEA [None]
  - FEELING COLD [None]
  - SYNCOPE [None]
  - TREMOR [None]
  - WEIGHT DECREASED [None]
